FAERS Safety Report 12942549 (Version 1)
Quarter: 2016Q4

REPORT INFORMATION
  Report Type: Spontaneous
  Country: US (occurrence: US)
  Receive Date: 20161114
  Receipt Date: 20161114
  Transmission Date: 20170207
  Serious: No
  Sender: FDA-Public Use
  Company Number: US-ASTRAZENECA-2016SF12116

PATIENT
  Age: 19263 Day
  Sex: Female

DRUGS (13)
  1. FENTANYL. [Concomitant]
     Active Substance: FENTANYL
     Dosage: EVERY 48 TO 72 HOUR
     Route: 061
  2. DOCUSATE- SENNA [Concomitant]
     Dosage: 50MG-8.6MG, BEDTIME
     Route: 048
  3. VENLAFAXINE [Concomitant]
     Active Substance: VENLAFAXINE HYDROCHLORIDE
     Route: 048
  4. CELEBREX [Suspect]
     Active Substance: CELECOXIB
     Route: 065
  5. GABAPENTIN. [Concomitant]
     Active Substance: GABAPENTIN
     Dosage: 300 MG AT NIGHT
     Route: 048
  6. OXYCODONE [Concomitant]
     Active Substance: OXYCODONE
     Indication: PAIN
     Route: 048
  7. PALBOCICLIN [Concomitant]
     Dosage: 100.0MG UNKNOWN
     Route: 048
  8. TAMOXIFEN [Suspect]
     Active Substance: TAMOXIFEN
     Route: 048
  9. IBRANCE [Suspect]
     Active Substance: PALBOCICLIB
     Route: 030
  10. LETROZOLE. [Concomitant]
     Active Substance: LETROZOLE
  11. OMERPRAZOLE [Suspect]
     Active Substance: OMEPRAZOLE
     Route: 048
  12. LETROZOLE. [Concomitant]
     Active Substance: LETROZOLE
     Route: 048
  13. OMEPRAZOLE. [Concomitant]
     Active Substance: OMEPRAZOLE
     Indication: GASTROOESOPHAGEAL REFLUX DISEASE
     Route: 048

REACTIONS (2)
  - Hot flush [Unknown]
  - Pain [Unknown]

NARRATIVE: CASE EVENT DATE: 20161004
